FAERS Safety Report 5038660-7 (Version None)
Quarter: 2006Q2

REPORT INFORMATION
  Report Type: 
  Country: None (occurrence: None)
  Receive Date: 20060627
  Receipt Date: 20060627
  Transmission Date: 20061013
  Serious: Yes (Hospitalization)
  Sender: FDA-Public Use
  Company Number: None

PATIENT
  Age: 59 Year
  Sex: Male
  Weight: 69 kg

DRUGS (9)
  1. COMBIVIR [Suspect]
     Indication: HIV INFECTION
     Dosage: 300/150 MG, BID, PO
     Route: 048
     Dates: start: 20050815, end: 20060530
  2. EFAVIRENZ [Suspect]
     Indication: HIV INFECTION
     Dosage: 600 MG, QHS, PO
     Route: 048
     Dates: start: 20050815, end: 20060530
  3. CEFOBID [Concomitant]
  4. UNASYN [Concomitant]
  5. LEVAQUIN [Concomitant]
  6. LASIX [Concomitant]
  7. SODIUM FLUORACETATE [Concomitant]
  8. LANOXIN [Concomitant]
  9. ANTISTERONE [Concomitant]

REACTIONS (31)
  - ARRHYTHMIA [None]
  - ATRIAL FIBRILLATION [None]
  - ATRIAL FLUTTER [None]
  - ATRIAL HYPERTROPHY [None]
  - ATRIAL TACHYCARDIA [None]
  - BLOOD POTASSIUM DECREASED [None]
  - BRONCHITIS [None]
  - CARDIAC FAILURE [None]
  - CARDIAC FAILURE CONGESTIVE [None]
  - CARDIAC HYPERTROPHY [None]
  - CARDIAC VALVE DISEASE [None]
  - CARDIOMEGALY [None]
  - DRUG INEFFECTIVE [None]
  - DYSPNOEA [None]
  - HEPATOMEGALY [None]
  - HYDROTHORAX [None]
  - HYPOTONIA [None]
  - ILL-DEFINED DISORDER [None]
  - INFLAMMATION [None]
  - INTERSTITIAL LUNG DISEASE [None]
  - LUNG DISORDER [None]
  - MALAISE [None]
  - MITRAL VALVE INCOMPETENCE [None]
  - MOVEMENT DISORDER [None]
  - PALPITATIONS [None]
  - PERICARDIAL EFFUSION [None]
  - PLEURISY [None]
  - PULMONARY CONGESTION [None]
  - SINUS BRADYCARDIA [None]
  - SUPRAVENTRICULAR EXTRASYSTOLES [None]
  - TRICUSPID VALVE INCOMPETENCE [None]
